FAERS Safety Report 4441074-1 (Version None)
Quarter: 2004Q3

REPORT INFORMATION
  Report Type: 
  Country: None (occurrence: None)
  Receive Date: 20040830
  Receipt Date: 20040723
  Transmission Date: 20050211
  Serious: No
  Sender: FDA-Public Use
  Company Number: 04P-163-0268091-00

PATIENT
  Age: 33 Year
  Sex: Male
  Weight: 214 kg

DRUGS (8)
  1. DEPAKOTE ER [Suspect]
     Indication: MOOD ALTERED
     Dosage: 500 MG, 2 IN 1 D, PER ORAL
     Route: 048
     Dates: start: 20021101, end: 20040720
  2. CLOZAPINE [Concomitant]
  3. LEVOTHYROXINE SODIUM [Concomitant]
  4. HALOPERIDOL [Concomitant]
  5. LITHIUM CARBONATE [Concomitant]
  6. METFORMIN HCL [Concomitant]
  7. BENZATROPINE [Concomitant]
  8. NICOTINIC ACID [Concomitant]

REACTIONS (2)
  - BLOOD URINE [None]
  - THROMBOCYTOPENIA [None]
